FAERS Safety Report 5495514-X (Version None)
Quarter: 2007Q4

REPORT INFORMATION
  Report Type: 
  Country: None (occurrence: None)
  Receive Date: 20071023
  Receipt Date: 20071012
  Transmission Date: 20080405
  Serious: Yes (Death, Hospitalization, Other)
  Sender: FDA-Public Use
  Company Number: 2007-00747

PATIENT
  Age: 63 Year
  Sex: Male

DRUGS (30)
  1. VELCADE [Suspect]
     Indication: MULTIPLE MYELOMA
     Dosage: 2.00 MG,; 1.50 MG,
     Dates: start: 20070220, end: 20070302
  2. VELCADE [Suspect]
     Indication: MULTIPLE MYELOMA
     Dosage: 2.00 MG,; 1.50 MG,
     Dates: start: 20070417, end: 20070522
  3. DEXAMETHASONE 0.5MG TAB [Concomitant]
  4. MUCOSTA (REBAMIPIDE) [Concomitant]
  5. AMPHOTERICIN B [Concomitant]
  6. RABEPRAZOLE SODIUM [Concomitant]
  7. ZOLPIDEM TARTRATE [Concomitant]
  8. BAKTAR (SULFAMETHOXAZOLE, TRIMETHOPRIM) [Concomitant]
  9. ITRACONAZOLE [Concomitant]
  10. GRAN [Concomitant]
  11. ALLOPURINOL [Concomitant]
  12. SODIUM BICARBONATE [Concomitant]
  13. TORSEMIDE [Concomitant]
  14. XYLOCAINE [Concomitant]
  15. NOZLEN (SODIUM GUALENATE) [Concomitant]
  16. RED BLOOD CELLS [Concomitant]
  17. PLATELETS [Concomitant]
  18. GAMMAGARD [Concomitant]
  19. TIENAM (IMIPENEM, CILASTATIN) [Concomitant]
  20. KAYTWO (MENATETRENONE) [Concomitant]
  21. LASIX [Concomitant]
  22. ORGARAN [Concomitant]
  23. PIPERACILLIN SODIUM AND TAZOBACTAM SODIUM [Concomitant]
  24. CIPROFLAXACIN [Concomitant]
  25. PLASMA [Concomitant]
  26. MORPHINE [Concomitant]
  27. MEXITIL [Concomitant]
  28. VANCOMYCIN [Concomitant]
  29. ACYCLOVIR [Concomitant]
  30. PROMAC /JPN/ (POLAPREZINC) [Concomitant]

REACTIONS (12)
  - BLOOD ALKALINE PHOSPHATASE INCREASED [None]
  - CARDIAC FAILURE [None]
  - CARDIAC HYPERTROPHY [None]
  - CONDITION AGGRAVATED [None]
  - DIARRHOEA [None]
  - DISSEMINATED INTRAVASCULAR COAGULATION [None]
  - FUNGAL INFECTION [None]
  - HYPOALBUMINAEMIA [None]
  - MULTIPLE MYELOMA [None]
  - PLEURAL EFFUSION [None]
  - PNEUMONIA [None]
  - STOMATITIS [None]
